APPROVED DRUG PRODUCT: DOCOSANOL
Active Ingredient: DOCOSANOL
Strength: 10%
Dosage Form/Route: CREAM;TOPICAL
Application: A214454 | Product #001
Applicant: SUN PHARMA CANADA INC
Approved: Oct 26, 2023 | RLD: No | RS: No | Type: OTC